FAERS Safety Report 11796880 (Version 1)
Quarter: 2015Q4

REPORT INFORMATION
  Report Type: Spontaneous
  Country: US (occurrence: None)
  Receive Date: 20151202
  Receipt Date: 20151202
  Transmission Date: 20160305
  Serious: No
  Sender: FDA-Public Use
  Company Number: None

PATIENT
  Age: 31 Year
  Sex: Male

DRUGS (2)
  1. APAP [Concomitant]
     Active Substance: ACETAMINOPHEN
  2. APTIOM [Suspect]
     Active Substance: ESLICARBAZEPINE ACETATE
     Indication: EPILEPSY
     Route: 048
     Dates: start: 20151117, end: 20151124

REACTIONS (10)
  - Suicidal ideation [None]
  - Nightmare [None]
  - Memory impairment [None]
  - Mania [None]
  - Stomatitis [None]
  - Psychotic disorder [None]
  - Anxiety [None]
  - Abnormal dreams [None]
  - Tremor [None]
  - Contusion [None]

NARRATIVE: CASE EVENT DATE: 20151117
